FAERS Safety Report 16031567 (Version 1)
Quarter: 2019Q1

REPORT INFORMATION
  Report Type: Spontaneous
  Country: US (occurrence: US)
  Receive Date: 20190304
  Receipt Date: 20190304
  Transmission Date: 20190418
  Serious: No
  Sender: FDA-Public Use
  Company Number: US-IMPAX LABORATORIES, LLC-2018-IPXL-01856

PATIENT
  Age: 71 Year
  Sex: Female
  Weight: 63 kg

DRUGS (14)
  1. RYTARY [Suspect]
     Active Substance: CARBIDOPA\LEVODOPA
     Dosage: 36.25/145 MG, TWO CAPSULES THREE TIMES A DAY
     Route: 048
     Dates: start: 2018
  2. COMBIGAN [Concomitant]
     Active Substance: BRIMONIDINE TARTRATE\TIMOLOL MALEATE
     Indication: RETINAL DISORDER
     Dosage: UNK, THREE TIMES A DAY
     Route: 031
  3. HYDRALAZINE [Concomitant]
     Active Substance: HYDRALAZINE HYDROCHLORIDE
     Indication: HYPERTENSION
     Dosage: 12.5 MG, ONCE A DAY
     Route: 048
  4. LEVOTHYROXINE. [Concomitant]
     Active Substance: LEVOTHYROXINE
     Indication: THYROID HORMONES DECREASED
     Dosage: UNK, ONE TABLET, ONCE A DAY
     Route: 048
  5. RYTARY [Suspect]
     Active Substance: CARBIDOPA\LEVODOPA
     Dosage: 23.75/95 MG, 1 CAPSULE, FOUR TIMES A DAY
     Route: 048
     Dates: end: 2018
  6. LOTEMAX [Concomitant]
     Active Substance: LOTEPREDNOL ETABONATE
     Indication: RETINAL DISORDER
     Dosage: UNK, THREE TIMES A DAY
     Route: 031
  7. KETOROLAC [Concomitant]
     Active Substance: KETOROLAC\KETOROLAC TROMETHAMINE
     Indication: RETINAL DISORDER
     Dosage: UNK, THREE TIMES A DAY
     Route: 031
  8. HCTZ [Concomitant]
     Active Substance: HYDROCHLOROTHIAZIDE
     Indication: HYPERTENSION
     Dosage: 12.5 MG, ONCE A DAY
     Route: 048
  9. METOPROLOL. [Concomitant]
     Active Substance: METOPROLOL
     Indication: HYPERTENSION
     Dosage: 25 MG, ONCE A DAY
     Route: 048
  10. TRAMADOL. [Concomitant]
     Active Substance: TRAMADOL
     Indication: ARTHRITIS
     Dosage: 50 MG, AS NEEDED
     Route: 048
  11. RYTARY [Suspect]
     Active Substance: CARBIDOPA\LEVODOPA
     Indication: PARKINSON^S DISEASE
     Dosage: 61.25/ 245 MG, 1 CAPSULE, THREE TIMES DAILY
     Route: 048
  12. ASPIRIN. [Concomitant]
     Active Substance: ASPIRIN
     Indication: CARDIAC DISORDER
     Dosage: 81 MG, ONE TABLET. ONCE A DAY
     Route: 048
  13. METFORMIN [Concomitant]
     Active Substance: METFORMIN HYDROCHLORIDE
     Indication: DIABETES MELLITUS
     Dosage: 500 MG, ONCE A DAY
     Route: 048
  14. VALSARTAN. [Concomitant]
     Active Substance: VALSARTAN
     Indication: HYPERTENSION
     Dosage: 160 MG, ONCE A DAY
     Route: 048

REACTIONS (3)
  - Dysstasia [Unknown]
  - Fall [Unknown]
  - Dyskinesia [Not Recovered/Not Resolved]

NARRATIVE: CASE EVENT DATE: 2018
